FAERS Safety Report 12354203 (Version 1)
Quarter: 2016Q2

REPORT INFORMATION
  Report Type: Spontaneous
  Country: BE (occurrence: BE)
  Receive Date: 20160511
  Receipt Date: 20160511
  Transmission Date: 20160815
  Serious: Yes (Hospitalization, Other)
  Sender: FDA-Public Use
  Company Number: BE-SUN PHARMACEUTICAL INDUSTRIES LTD-2016R1-109702

PATIENT
  Age: 23 Year
  Sex: Male

DRUGS (4)
  1. PHENOBARBITAL. [Interacting]
     Active Substance: PHENOBARBITAL
     Indication: STATUS EPILEPTICUS
     Dosage: 800 MG, DAILY
     Route: 042
  2. OXCARBAZEPINE. [Suspect]
     Active Substance: OXCARBAZEPINE
     Indication: EPILEPSY
     Dosage: 2400 MG, DAILY
     Route: 065
  3. TOPIRAMATE. [Interacting]
     Active Substance: TOPIRAMATE
     Indication: EPILEPSY
     Dosage: 400 MG, DAILY
     Route: 065
  4. CLOBAZAM [Concomitant]
     Active Substance: CLOBAZAM
     Indication: EPILEPSY
     Dosage: 20 MG, DAILY
     Route: 065

REACTIONS (4)
  - Drug interaction [Unknown]
  - Coma scale abnormal [Recovering/Resolving]
  - Hyperammonaemic encephalopathy [Recovering/Resolving]
  - Treatment failure [Unknown]
